FAERS Safety Report 7340986-9 (Version None)
Quarter: 2011Q1

REPORT INFORMATION
  Report Type: 
  Country: None (occurrence: None)
  Receive Date: 20110301
  Receipt Date: 20110216
  Transmission Date: 20110831
  Serious: Yes (Hospitalization)
  Sender: FDA-Public Use
  Company Number: 2011000765

PATIENT
  Age: 79 Year
  Sex: Female

DRUGS (1)
  1. TARCEVA [Suspect]
     Indication: LUNG NEOPLASM MALIGNANT
     Dosage: (100 MG,QD),ORAL
     Route: 048
     Dates: start: 20101101

REACTIONS (5)
  - HYPOTENSION [None]
  - FATIGUE [None]
  - ALOPECIA [None]
  - NASAL DISCOMFORT [None]
  - RASH [None]
